FAERS Safety Report 7034569-8 (Version None)
Quarter: 2010Q4

REPORT INFORMATION
  Report Type: 
  Country: None (occurrence: None)
  Receive Date: 20101008
  Receipt Date: 20100929
  Transmission Date: 20110411
  Serious: Yes (Hospitalization)
  Sender: FDA-Public Use
  Company Number: JP-SHIRE-SPV1-2010-01716

PATIENT
  Age: 89 Year
  Sex: Male

DRUGS (2)
  1. LANTHANUM CARBONATE [Suspect]
     Indication: HYPERPHOSPHATAEMIA
     Dosage: 250 MG, 1X/DAY:QD
     Route: 048
     Dates: start: 20100804, end: 20100908
  2. LANTHANUM CARBONATE [Suspect]
     Dosage: 750 MG, 1X/DAY:QD
     Route: 048
     Dates: start: 20100909, end: 20100924

REACTIONS (1)
  - DIVERTICULITIS [None]
